FAERS Safety Report 19382238 (Version 1)
Quarter: 2021Q2

REPORT INFORMATION
  Report Type: Spontaneous
  Country: US (occurrence: US)
  Receive Date: 20210607
  Receipt Date: 20210607
  Transmission Date: 20210717
  Serious: No
  Sender: FDA-Public Use
  Company Number: US-KYOWAKIRIN-2021BKK008802

PATIENT

DRUGS (1)
  1. SANCUSO [Suspect]
     Active Substance: GRANISETRON
     Indication: ILLNESS
     Dosage: 1 PATCH ONTO THE SKIN (AT LEAST 24 HRS PRIOR TO CHEMOTHERAPY AND REMOVE AT LEAST 24 HRS AFTER CHEMOT
     Route: 062
     Dates: start: 2021, end: 2021

REACTIONS (2)
  - Illness [Unknown]
  - Condition aggravated [Unknown]

NARRATIVE: CASE EVENT DATE: 2021
